FAERS Safety Report 21982346 (Version 6)
Quarter: 2023Q2

REPORT INFORMATION
  Report Type: Report from Study
  Country: US (occurrence: US)
  Receive Date: 20230213
  Receipt Date: 20230626
  Transmission Date: 20230722
  Serious: Yes (Other)
  Sender: FDA-Public Use
  Company Number: US-002147023-NVSC2023US025457

PATIENT
  Age: 59 Year
  Sex: Female

DRUGS (10)
  1. ENTRESTO [Suspect]
     Active Substance: SACUBITRIL\VALSARTAN
     Indication: Product used for unknown indication
     Dosage: 1 DOSAGE FORM
     Route: 065
     Dates: start: 202210
  2. CANDESARTAN [Suspect]
     Active Substance: CANDESARTAN
     Indication: Product used for unknown indication
     Dosage: UNK
     Route: 065
     Dates: start: 201808, end: 202210
  3. RAMIPRIL [Suspect]
     Active Substance: RAMIPRIL
     Indication: Product used for unknown indication
     Dosage: UNK
     Route: 065
     Dates: start: 201806, end: 201808
  4. METOPROLOL [Suspect]
     Active Substance: METOPROLOL
     Indication: Product used for unknown indication
     Dosage: 50 MG, QD
     Route: 065
     Dates: start: 2018
  5. LIPITOR [Suspect]
     Active Substance: ATORVASTATIN CALCIUM
     Indication: Product used for unknown indication
     Dosage: 10 MG
     Route: 065
     Dates: start: 2018
  6. LIPITOR [Suspect]
     Active Substance: ATORVASTATIN CALCIUM
     Dosage: 20 MG
     Route: 065
  7. ASPIRIN [Suspect]
     Active Substance: ASPIRIN
     Indication: Product used for unknown indication
     Dosage: 81 MG
     Route: 065
     Dates: start: 2019
  8. FUROSEMIDE [Suspect]
     Active Substance: FUROSEMIDE
     Indication: Product used for unknown indication
     Dosage: UNK
     Route: 065
  9. FUROSEMIDE [Suspect]
     Active Substance: FUROSEMIDE
     Dosage: UNK (DOSE REDUCED)
     Route: 065
  10. CAFFEINE [Concomitant]
     Active Substance: CAFFEINE
     Indication: Flushing
     Dosage: UNK
     Route: 065

REACTIONS (14)
  - Cardiac failure congestive [Unknown]
  - Renal impairment [Not Recovered/Not Resolved]
  - Weight fluctuation [Not Recovered/Not Resolved]
  - Hypertension [Recovered/Resolved]
  - Panic reaction [Recovered/Resolved]
  - Gastroenteritis viral [Recovering/Resolving]
  - Cough [Recovered/Resolved]
  - Cough [Recovered/Resolved]
  - Dehydration [Unknown]
  - Aspartate aminotransferase increased [Unknown]
  - Post procedural swelling [Recovering/Resolving]
  - COVID-19 [Recovering/Resolving]
  - Cough [Not Recovered/Not Resolved]
  - Contraindicated product administered [Unknown]

NARRATIVE: CASE EVENT DATE: 20180601
